FAERS Safety Report 18343129 (Version 1)
Quarter: 2020Q4

REPORT INFORMATION
  Report Type: Spontaneous
  Country: CA (occurrence: CA)
  Receive Date: 20201005
  Receipt Date: 20201005
  Transmission Date: 20210113
  Serious: Yes (Life-Threatening, Other)
  Sender: FDA-Public Use
  Company Number: CA-ACCORD-203526

PATIENT
  Age: 4 Year
  Sex: Male
  Weight: 15 kg

DRUGS (27)
  1. METHOTREXATE. [Suspect]
     Active Substance: METHOTREXATE
     Indication: ACUTE LYMPHOCYTIC LEUKAEMIA
     Route: 042
  2. CYTARABINE/CYTARABINE HYDROCHLORIDE/CYTARABINE OCFOSFATE [Suspect]
     Active Substance: CYTARABINE
     Indication: ACUTE LYMPHOCYTIC LEUKAEMIA
     Dosage: FREQUENCY: 1 EVERY 12 HOURS, INJECTION, DOSAGE FORM: SOLUTION INTRATHECAL
     Route: 042
  3. LANSOPRAZOLE. [Concomitant]
     Active Substance: LANSOPRAZOLE
  4. CYTARABINE/CYTARABINE HYDROCHLORIDE/CYTARABINE OCFOSFATE [Suspect]
     Active Substance: CYTARABINE
     Indication: ACUTE LYMPHOCYTIC LEUKAEMIA
     Dosage: FREQUENCY: ONCE, INJECTION, DOSAGE FORM: SOLUTION INTRATHECAL
     Route: 037
  5. METOCLOPRAMIDE. [Concomitant]
     Active Substance: METOCLOPRAMIDE
  6. DEXAMETHASONE. [Concomitant]
     Active Substance: DEXAMETHASONE
  7. SODIUM [Concomitant]
     Active Substance: SODIUM
  8. ONDANSETRON [Concomitant]
     Active Substance: ONDANSETRON
  9. MAGNESIUM [Concomitant]
     Active Substance: MAGNESIUM
  10. AMLODIPINE [Concomitant]
     Active Substance: AMLODIPINE BESYLATE
  11. METHOTREXATE. [Suspect]
     Active Substance: METHOTREXATE
     Indication: ACUTE LYMPHOCYTIC LEUKAEMIA
     Dosage: FREQUENCY: ONCE
     Route: 037
  12. CYCLOPHOSPHAMIDE/CYCLOPHOSPHAMIDE MONOHYDRATE [Suspect]
     Active Substance: CYCLOPHOSPHAMIDE
     Indication: ACUTE LYMPHOCYTIC LEUKAEMIA
     Dosage: FREQUENCY:1 EVERY 12 HOURS, DOSAGE FORM: POWDER FOR SOLUTION INTRAVENOUS
     Route: 042
  13. ASPARAGINASE [Suspect]
     Active Substance: ASPARAGINASE
     Indication: PRODUCT USED FOR UNKNOWN INDICATION
     Dosage: DOSAGE FORM: POWDER FOR SOLUTION INTRAMUSCULAR
     Route: 041
  14. SALBUTAMOL [Concomitant]
     Active Substance: ALBUTEROL
  15. DIMENHYDRINATE. [Concomitant]
     Active Substance: DIMENHYDRINATE
     Dosage: DOSAGE FORM: LIQUID INTRAVENOUS
  16. POTASSIUM [Concomitant]
     Active Substance: POTASSIUM
  17. FAMOTIDINE. [Concomitant]
     Active Substance: FAMOTIDINE
  18. DIPHENHYDRAMINE. [Concomitant]
     Active Substance: DIPHENHYDRAMINE
  19. CEFTAZIDIME/CEFTAZIDIME PENTAHYDRATE [Concomitant]
     Active Substance: CEFTAZIDIME
  20. VINCRISTINE [Suspect]
     Active Substance: VINCRISTINE
     Indication: ACUTE LYMPHOCYTIC LEUKAEMIA
     Dosage: FREQUENCY: ONCE
     Route: 041
  21. FOLINIC ACID [Concomitant]
     Active Substance: LEUCOVORIN
  22. CICLESONIDE [Concomitant]
     Active Substance: CICLESONIDE
  23. METHOTREXATE. [Suspect]
     Active Substance: METHOTREXATE
     Indication: ACUTE LYMPHOCYTIC LEUKAEMIA
     Route: 042
  24. HYDROCORTISONE. [Suspect]
     Active Substance: HYDROCORTISONE
     Indication: ACUTE LYMPHOCYTIC LEUKAEMIA
     Dosage: FREQUENCY: ONCE
     Route: 037
  25. RANITIDINE. [Concomitant]
     Active Substance: RANITIDINE
  26. IMATINIB/IMATINIB MESILATE [Suspect]
     Active Substance: IMATINIB
     Indication: ACUTE LYMPHOCYTIC LEUKAEMIA
     Dosage: FREQUENCY: 1 EVERY 1 DAYS
     Route: 048
  27. MELATONIN [Concomitant]
     Active Substance: MELATONIN

REACTIONS (4)
  - Stomatitis [Recovered/Resolved]
  - Incorrect route of product administration [Unknown]
  - Aplastic anaemia [Recovered/Resolved]
  - Decreased appetite [Recovered/Resolved]
